FAERS Safety Report 7419532-7 (Version None)
Quarter: 2011Q2

REPORT INFORMATION
  Report Type: 
  Country: None (occurrence: None)
  Receive Date: 20110418
  Receipt Date: 20110406
  Transmission Date: 20111010
  Serious: No
  Sender: FDA-Public Use
  Company Number: PHHY2010US87712

PATIENT
  Sex: Female

DRUGS (3)
  1. MOTRIN [Concomitant]
     Indication: HYPERTENSION
     Dosage: 5 MG, BID
     Dates: start: 20000101
  2. FEMARA [Suspect]
     Dosage: 2.5 MG, QD
     Route: 048
     Dates: start: 20100401
  3. VOLTAREN [Concomitant]
     Indication: ARTHRITIS
     Dosage: 75 MG, BID
     Dates: start: 20000101, end: 20100101

REACTIONS (1)
  - NO ADVERSE EVENT [None]
